FAERS Safety Report 19994623 (Version 1)
Quarter: 2021Q4

REPORT INFORMATION
  Report Type: Spontaneous
  Country: CN (occurrence: CN)
  Receive Date: 20211026
  Receipt Date: 20211026
  Transmission Date: 20220304
  Serious: Yes (Other)
  Sender: FDA-Public Use
  Company Number: CN-BOEHRINGERINGELHEIM-2021-BI-133888

PATIENT
  Age: 10 Month
  Sex: Male
  Weight: 8.7 kg

DRUGS (2)
  1. ATROVENT [Suspect]
     Active Substance: IPRATROPIUM BROMIDE
     Indication: Cough
     Route: 055
     Dates: start: 20211009, end: 20211009
  2. BUDESONIDE [Concomitant]
     Active Substance: BUDESONIDE
     Indication: Cough
     Dosage: DOSAGE FORM OF BUDESONIDE SUSPENSION FOR INHALATION: SUSPENSION
     Route: 055
     Dates: start: 20211009, end: 20211009

REACTIONS (3)
  - Dysphoria [Recovering/Resolving]
  - Heart rate increased [Recovering/Resolving]
  - Erythema [Recovering/Resolving]

NARRATIVE: CASE EVENT DATE: 20211009
